FAERS Safety Report 5515147-6 (Version None)
Quarter: 2007Q4

REPORT INFORMATION
  Report Type: 
  Country: None (occurrence: None)
  Receive Date: 20071113
  Receipt Date: 20070119
  Transmission Date: 20080405
  Serious: No
  Sender: FDA-Public Use
  Company Number: A0636310A

PATIENT
  Age: 83 Year
  Sex: Female

DRUGS (8)
  1. COREG [Suspect]
     Dosage: 6.25MG TWICE PER DAY
     Route: 048
  2. WARFARIN SODIUM [Concomitant]
  3. TEMAZEPAM [Concomitant]
  4. AMBIEN [Concomitant]
  5. FUROSEMIDE [Concomitant]
  6. DIGITEK [Concomitant]
  7. PROPOXYPHENE HYDROCHLORIDE [Concomitant]
  8. ACETAMINOPHEN [Concomitant]

REACTIONS (1)
  - ALOPECIA [None]
